FAERS Safety Report 8143882-2 (Version None)
Quarter: 2012Q1

REPORT INFORMATION
  Report Type: 
  Country: None (occurrence: None)
  Receive Date: 20120217
  Receipt Date: 20120208
  Transmission Date: 20120608
  Serious: Yes (Other)
  Sender: FDA-Public Use
  Company Number: CA-JNJFOC-20120110811

PATIENT
  Sex: Female
  Weight: 54.5 kg

DRUGS (9)
  1. REMICADE [Suspect]
     Route: 042
     Dates: start: 20110927
  2. REMICADE [Suspect]
     Route: 042
     Dates: start: 20090926
  3. REMICADE [Suspect]
     Route: 042
  4. IMURAN [Concomitant]
     Route: 065
  5. CEPHALEXIN [Concomitant]
     Route: 065
  6. REMICADE [Suspect]
     Indication: CROHN'S DISEASE
     Route: 042
  7. REMICADE [Suspect]
     Route: 042
     Dates: start: 20111214
  8. COUMADIN [Concomitant]
     Route: 065
  9. CIPROFLOXACIN [Concomitant]

REACTIONS (3)
  - CELLULITIS [None]
  - ARTHRALGIA [None]
  - FISTULA [None]
